FAERS Safety Report 19445469 (Version 1)
Quarter: 2021Q2

REPORT INFORMATION
  Report Type: Spontaneous
  Country: US (occurrence: US)
  Receive Date: 20210622
  Receipt Date: 20210622
  Transmission Date: 20210717
  Serious: Yes (Other)
  Sender: FDA-Public Use
  Company Number: US-AUROBINDO-AUR-APL-2021-025338

PATIENT
  Age: 24 Year
  Sex: Male

DRUGS (3)
  1. DIDANOSINE. [Suspect]
     Active Substance: DIDANOSINE
     Indication: ANTIRETROVIRAL THERAPY
     Dosage: UNK
     Route: 065
  2. ZIDOVUDINE. [Suspect]
     Active Substance: ZIDOVUDINE
     Indication: ANTIRETROVIRAL THERAPY
     Dosage: UNK
     Route: 065
  3. LAMIVUDINE + STAVUDINE [Suspect]
     Active Substance: LAMIVUDINE\STAVUDINE
     Indication: ANTIRETROVIRAL THERAPY
     Dosage: UNK
     Route: 065

REACTIONS (6)
  - Type 2 diabetes mellitus [Recovered/Resolved]
  - Pollakiuria [Recovered/Resolved]
  - Hyperglycaemia [Recovered/Resolved]
  - Thirst [Recovered/Resolved]
  - High density lipoprotein decreased [Recovered/Resolved]
  - Hypertriglyceridaemia [Recovered/Resolved]
